FAERS Safety Report 8002073-6 (Version None)
Quarter: 2011Q4

REPORT INFORMATION
  Report Type: 
  Country: None (occurrence: None)
  Receive Date: 20111222
  Receipt Date: 20111212
  Transmission Date: 20120403
  Serious: Yes (Other)
  Sender: FDA-Public Use
  Company Number: IT-MYLANLABS-2011S1025693

PATIENT
  Age: 43 Year
  Sex: Female

DRUGS (4)
  1. ALBUTEROL SULFATE AUTOHALER [Suspect]
     Indication: ASTHMA
     Route: 055
  2. ALBUTEROL SULFATE AUTOHALER [Suspect]
     Indication: COUGH
     Route: 055
  3. SALMETEROL [Suspect]
     Indication: ASTHMA
     Dosage: 100MICROG/DAY
     Route: 055
  4. SALMETEROL [Suspect]
     Indication: COUGH
     Dosage: 100MICROG/DAY
     Route: 055

REACTIONS (1)
  - CYSTITIS HAEMORRHAGIC [None]
